FAERS Safety Report 9408141 (Version 2)
Quarter: 2013Q4

REPORT INFORMATION
  Report Type: Report from Study
  Country: AU (occurrence: AU)
  Receive Date: 20130718
  Receipt Date: 20131108
  Transmission Date: 20140711
  Serious: Yes (Hospitalization, Other)
  Sender: FDA-Public Use
  Company Number: AU-ROCHE-1250298

PATIENT
  Sex: Female
  Weight: 71 kg

DRUGS (5)
  1. TRASTUZUMAB EMTANSINE [Suspect]
     Indication: BREAST CANCER METASTATIC
     Route: 042
     Dates: start: 20130615
  2. EFEXOR [Concomitant]
     Indication: DEPRESSION
     Route: 048
  3. MAXOLON [Concomitant]
     Indication: NAUSEA
     Route: 048
  4. DEXAMETHASONE [Concomitant]
     Route: 065
  5. METOCLOPRAMIDE HYDROCHLORIDE [Concomitant]
     Route: 065

REACTIONS (4)
  - Disease progression [Not Recovered/Not Resolved]
  - Nausea [Unknown]
  - Vomiting [Unknown]
  - Restless legs syndrome [Unknown]
